FAERS Safety Report 25688143 (Version 1)
Quarter: 2025Q3

REPORT INFORMATION
  Report Type: Spontaneous
  Country: US (occurrence: US)
  Receive Date: 20250818
  Receipt Date: 20250818
  Transmission Date: 20251020
  Serious: Yes (Other)
  Sender: BAXTER
  Company Number: US-MLMSERVICE-20250801-PI597839-00175-1

PATIENT
  Age: 70 Year
  Sex: Male

DRUGS (3)
  1. HEPARIN SODIUM [Suspect]
     Active Substance: HEPARIN SODIUM
     Indication: Anticoagulant therapy
     Route: 065
  2. ASPIRIN [Concomitant]
     Active Substance: ASPIRIN
     Indication: Antiplatelet therapy
     Route: 065
  3. CLOPIDOGREL [Concomitant]
     Active Substance: CLOPIDOGREL BISULFATE
     Indication: Antiplatelet therapy
     Route: 065

REACTIONS (10)
  - Mediastinal haematoma [Recovering/Resolving]
  - Haematoma [Recovering/Resolving]
  - Tracheal compression [Recovering/Resolving]
  - Respiratory distress [Unknown]
  - Stridor [Unknown]
  - Wheezing [Unknown]
  - Breath sounds abnormal [Unknown]
  - Swelling [Unknown]
  - Condition aggravated [Unknown]
  - Laryngeal oedema [Unknown]
